FAERS Safety Report 23332213 (Version 1)
Quarter: 2023Q4

REPORT INFORMATION
  Report Type: Spontaneous
  Country: US (occurrence: US)
  Receive Date: 20231222
  Receipt Date: 20231222
  Transmission Date: 20240109
  Serious: Yes (Other)
  Sender: FDA-Public Use
  Company Number: US-APELLIS PHARMACEUTICALS-APL-2023-003444

PATIENT

DRUGS (2)
  1. SYFOVRE [Suspect]
     Active Substance: PEGCETACOPLAN
     Indication: Product used for unknown indication
     Dosage: UNK, FIRST EYE
     Dates: start: 202311
  2. SYFOVRE [Suspect]
     Active Substance: PEGCETACOPLAN
     Dosage: UNK, SECOND EYE
     Dates: start: 202311

REACTIONS (3)
  - Retinitis [Unknown]
  - Retinal haemorrhage [Unknown]
  - Vitritis [Unknown]

NARRATIVE: CASE EVENT DATE: 20230101
